FAERS Safety Report 5115625-8 (Version None)
Quarter: 2006Q3

REPORT INFORMATION
  Report Type: 
  Country: None (occurrence: None)
  Receive Date: 20060927
  Receipt Date: 20060515
  Transmission Date: 20061208
  Serious: Yes (Hospitalization)
  Sender: FDA-Public Use
  Company Number: FRWYE623815MAY06

PATIENT
  Age: 56 Year
  Sex: Male
  Weight: 65 kg

DRUGS (7)
  1. ENBREL [Suspect]
     Indication: RHEUMATOID ARTHRITIS
     Route: 058
     Dates: start: 20041101, end: 20060309
  2. PARIET [Suspect]
     Route: 048
     Dates: start: 20051101, end: 20060315
  3. IBUPROFEN [Suspect]
     Route: 048
     Dates: start: 20051101, end: 20060315
  4. METHOTREXATE [Suspect]
     Indication: RHEUMATOID ARTHRITIS
     Dosage: UNKNOWN
     Dates: end: 20051101
  5. TOPALGIC [Concomitant]
     Indication: PAIN
     Dosage: OCCASIONALY; ABOUT 1 DOSE PER MONTH
     Dates: end: 20060315
  6. CELEBREX [Concomitant]
     Indication: PAIN
     Dosage: OCCASIONALLY; ABOUT 1 CAPSULE PER MONTH
     Route: 048
     Dates: end: 20060315
  7. OMEPRAZOLE [Concomitant]
     Dosage: OCCASIONALLY; ABOUT 1 DOSE PER MONTH
     Dates: end: 20060315

REACTIONS (13)
  - BONE MARROW EOSINOPHILIC LEUKOCYTE COUNT INCREASED [None]
  - COOMBS NEGATIVE HAEMOLYTIC ANAEMIA [None]
  - EOSINOPHIL COUNT INCREASED [None]
  - HEPATOMEGALY [None]
  - HILAR LYMPHADENOPATHY [None]
  - INFLAMMATION [None]
  - LYMPHOMA [None]
  - NEUTROPENIA [None]
  - PANCYTOPENIA [None]
  - PARASITE STOOL TEST POSITIVE [None]
  - PARATRACHEAL LYMPHADENOPATHY [None]
  - THROMBOCYTOPENIA [None]
  - TONSILLAR HYPERTROPHY [None]
